FAERS Safety Report 8831306 (Version 2)
Quarter: 2012Q4

REPORT INFORMATION
  Report Type: 
  Country: GB (occurrence: GB)
  Receive Date: 20121009
  Receipt Date: 20121015
  Transmission Date: 20130627
  Serious: Yes (Other)
  Sender: FDA-Public Use
  Company Number: GB-ACCORD-014878

PATIENT
  Age: 89 Year
  Sex: Female

DRUGS (7)
  1. DONEPEZIL [Suspect]
     Indication: ALZHEIMER^S DISEASE
     Route: 048
     Dates: start: 20120713, end: 20120904
  2. LOSARTAN [Concomitant]
  3. RISEDRONATE SODIUM [Concomitant]
  4. MOXONIDINE [Concomitant]
  5. QVAR [Concomitant]
     Dosage: Two puffs twice daily
     Route: 055
  6. ASPIRIN [Concomitant]
  7. FUROSEMIDE [Concomitant]

REACTIONS (5)
  - Hypomanic psychosis [Not Recovered/Not Resolved]
  - Increased energy [Unknown]
  - Delusion [Unknown]
  - Elation inappropriate [Unknown]
  - Slept much less and not going to bed until 4 am [Unknown]
